FAERS Safety Report 6540765-6 (Version None)
Quarter: 2010Q1

REPORT INFORMATION
  Report Type: 
  Country: None (occurrence: None)
  Receive Date: 20100118
  Receipt Date: 20100113
  Transmission Date: 20100710
  Serious: Yes (Hospitalization, Other)
  Sender: FDA-Public Use
  Company Number: BR-BAYER-200923642LA

PATIENT
  Age: 32 Year
  Sex: Female

DRUGS (2)
  1. MIRANOVA [Suspect]
     Indication: DRUG USE FOR UNKNOWN INDICATION
     Route: 048
     Dates: start: 20090501, end: 20091001
  2. GARDENAL [Concomitant]
     Indication: PETIT MAL EPILEPSY
     Route: 048
     Dates: start: 20040101

REACTIONS (6)
  - ABDOMINAL PAIN [None]
  - ABORTION THREATENED [None]
  - ANTEPARTUM HAEMORRHAGE [None]
  - PREGNANCY ON ORAL CONTRACEPTIVE [None]
  - PREMATURE SEPARATION OF PLACENTA [None]
  - UTERINE LEIOMYOMA [None]
